FAERS Safety Report 23156037 (Version 2)
Quarter: 2023Q4

REPORT INFORMATION
  Report Type: Spontaneous
  Country: US (occurrence: US)
  Receive Date: 20231107
  Receipt Date: 20231128
  Transmission Date: 20240110
  Serious: Yes (Hospitalization)
  Sender: FDA-Public Use
  Company Number: US-BRISTOL-MYERS SQUIBB COMPANY-2023-156995

PATIENT
  Age: 82 Year
  Sex: Male
  Weight: 115.67 kg

DRUGS (2)
  1. REVLIMID [Suspect]
     Active Substance: LENALIDOMIDE
     Indication: Plasma cell myeloma
     Dosage: D1-14 Q21 DAYS
     Route: 048
     Dates: start: 20230929
  2. REVLIMID [Suspect]
     Active Substance: LENALIDOMIDE
     Dosage: D1-14 Q21 DAYS
     Route: 048
     Dates: start: 20230929

REACTIONS (5)
  - Peripheral swelling [Recovering/Resolving]
  - Drug intolerance [Recovering/Resolving]
  - Off label use [Unknown]
  - Hypervolaemia [Recovering/Resolving]
  - Cardiac disorder [Recovering/Resolving]

NARRATIVE: CASE EVENT DATE: 20230101
